FAERS Safety Report 4579933-1 (Version None)
Quarter: 2005Q1

REPORT INFORMATION
  Report Type: 
  Country: None (occurrence: None)
  Receive Date: 20050203
  Receipt Date: 20040316
  Transmission Date: 20050727
  Serious: No
  Sender: FDA-Public Use
  Company Number: WAES 0403USA01467

PATIENT

DRUGS (1)
  1. ELSPAR [Suspect]

REACTIONS (2)
  - INJECTION SITE REACTION [None]
  - SKIN TEST POSITIVE [None]
